FAERS Safety Report 21334792 (Version 3)
Quarter: 2022Q4

REPORT INFORMATION
  Report Type: Spontaneous
  Country: CA (occurrence: CA)
  Receive Date: 20220914
  Receipt Date: 20221020
  Transmission Date: 20230113
  Serious: Yes (Other)
  Sender: FDA-Public Use
  Company Number: CA-PFIZER INC-202200894063

PATIENT
  Age: 62 Year
  Sex: Female

DRUGS (1)
  1. ABRILADA [Suspect]
     Active Substance: ADALIMUMAB-AFZB
     Indication: Rheumatoid arthritis
     Dosage: 40 MG, WEEKLY
     Route: 058
     Dates: start: 20220713

REACTIONS (15)
  - Suicidal ideation [Unknown]
  - Off label use [Unknown]
  - Cardiomegaly [Unknown]
  - Discomfort [Unknown]
  - Cardiac disorder [Unknown]
  - Stress [Unknown]
  - Depression [Unknown]
  - Pain [Unknown]
  - Decreased appetite [Unknown]
  - Rhinorrhoea [Unknown]
  - Speech disorder [Unknown]
  - General physical health deterioration [Unknown]
  - Feeling abnormal [Unknown]
  - Dizziness [Not Recovered/Not Resolved]
  - Malaise [Unknown]

NARRATIVE: CASE EVENT DATE: 20220101
